FAERS Safety Report 12493945 (Version 1)
Quarter: 2016Q2

REPORT INFORMATION
  Report Type: Spontaneous
  Country: US (occurrence: US)
  Receive Date: 20160623
  Receipt Date: 20160623
  Transmission Date: 20160815
  Serious: No
  Sender: FDA-Public Use
  Company Number: US-VIVUS-2016V1000082

PATIENT
  Sex: Male
  Weight: 71.28 kg

DRUGS (4)
  1. TAMSULOSIN [Suspect]
     Active Substance: TAMSULOSIN
     Indication: URINARY RETENTION
     Route: 048
     Dates: start: 201602
  2. STENDRA [Suspect]
     Active Substance: AVANAFIL
     Route: 048
     Dates: start: 2015
  3. TAMSULOSIN [Suspect]
     Active Substance: TAMSULOSIN
     Route: 048
     Dates: start: 2016
  4. STENDRA [Suspect]
     Active Substance: AVANAFIL
     Indication: ERECTILE DYSFUNCTION
     Dosage: UNKNOWN
     Route: 048
     Dates: start: 2015, end: 2015

REACTIONS (5)
  - Erection increased [Unknown]
  - Headache [Unknown]
  - Urinary incontinence [Not Recovered/Not Resolved]
  - Blood pressure decreased [Unknown]
  - Drug ineffective [Recovered/Resolved]

NARRATIVE: CASE EVENT DATE: 2015
